FAERS Safety Report 4765820-2 (Version None)
Quarter: 2005Q3

REPORT INFORMATION
  Report Type: 
  Country: None (occurrence: None)
  Receive Date: 20050906
  Receipt Date: 20050824
  Transmission Date: 20060218
  Serious: Yes (Death, Hospitalization)
  Sender: FDA-Public Use
  Company Number: HQWYE769208AUG05

PATIENT
  Age: 77 Year
  Sex: Male

DRUGS (3)
  1. PANTOPRAZOLE SODIUM [Suspect]
     Dosage: ORAL
     Route: 048
     Dates: end: 20040526
  2. NAPROXEN SODIUM [Suspect]
     Indication: ARTHRALGIA
     Dosage: ORAL
     Route: 048
     Dates: end: 20040526
  3. ATARAX [Suspect]
     Dosage: ORAL
     Route: 048
     Dates: end: 20040526

REACTIONS (18)
  - BACTERIA SPUTUM IDENTIFIED [None]
  - CARDIAC FAILURE CONGESTIVE [None]
  - HAEMODIALYSIS [None]
  - HAEMODYNAMIC INSTABILITY [None]
  - HYPOTENSION [None]
  - HYPOXIA [None]
  - INFLAMMATION [None]
  - INTERSTITIAL LUNG DISEASE [None]
  - METABOLIC ACIDOSIS [None]
  - MULTI-ORGAN FAILURE [None]
  - PSEUDOMONAS INFECTION [None]
  - PYREXIA [None]
  - RENAL FAILURE [None]
  - RESPIRATORY DISTRESS [None]
  - SEPTIC SHOCK [None]
  - STENOTROPHOMONAS INFECTION [None]
  - THERAPY NON-RESPONDER [None]
  - THROMBOCYTOPENIA [None]
